FAERS Safety Report 7951555 (Version 3)
Quarter: 2013Q1

REPORT INFORMATION
  Report Type: Spontaneous
  Country: US (occurrence: US)
  Receive Date: 20110519
  Receipt Date: 20130115
  Transmission Date: 20140127
  Serious: Yes (Hospitalization)
  Sender: FDA-Public Use
  Company Number: US-BAYER-2011-042218

PATIENT
  Age: 45 Year
  Sex: Female
  Weight: 94 kg

DRUGS (8)
  1. YASMIN [Suspect]
     Indication: CONTRACEPTION
     Dosage: UNK
     Dates: start: 20041115, end: 20051201
  2. YASMIN [Suspect]
     Indication: GENITAL HAEMORRHAGE
  3. PENICILLIN VK [Concomitant]
  4. EFFEXOR [Concomitant]
  5. OXYCODONE/APAP [Concomitant]
  6. ORPHENADRINE [Concomitant]
  7. METHYLPREDNISOLONE [Concomitant]
  8. ALPRAZOLAM [Concomitant]

REACTIONS (8)
  - Deep vein thrombosis [None]
  - Pain [None]
  - Emotional distress [None]
  - General physical health deterioration [None]
  - Anxiety [None]
  - Pain in extremity [None]
  - Local swelling [None]
  - Hypoaesthesia [None]
